FAERS Safety Report 6113275-8 (Version None)
Quarter: 2009Q1

REPORT INFORMATION
  Report Type: 
  Country: None (occurrence: None)
  Receive Date: 20090312
  Receipt Date: 20070228
  Transmission Date: 20090719
  Serious: No
  Sender: FDA-Public Use
  Company Number: US-ABBOTT-08P-163-0456217-00

PATIENT
  Sex: Male

DRUGS (1)
  1. DEPAKOTE [Suspect]
     Indication: MOOD ALTERED

REACTIONS (3)
  - EAR DISCOMFORT [None]
  - HEARING IMPAIRED [None]
  - TINNITUS [None]
